FAERS Safety Report 9201459 (Version 1)
Quarter: 2013Q2

REPORT INFORMATION
  Report Type: Spontaneous
  Country: US (occurrence: US)
  Receive Date: 20130401
  Receipt Date: 20130401
  Transmission Date: 20140414
  Serious: Yes (Hospitalization, Other)
  Sender: FDA-Public Use
  Company Number: US-ELI_LILLY_AND_COMPANY-US201303002467

PATIENT
  Age: 30 Year
  Sex: Male

DRUGS (2)
  1. DULOXETINE HYDROCHLORIDE [Suspect]
     Indication: MAJOR DEPRESSION
     Dosage: 60 MG, QD
  2. DULOXETINE HYDROCHLORIDE [Suspect]
     Dosage: 30 MG, QD

REACTIONS (8)
  - Suicidal ideation [Recovered/Resolved]
  - Panic attack [Recovered/Resolved]
  - Partner stress [None]
  - Intentional self-injury [None]
  - Anger [None]
  - Attention-seeking behaviour [None]
  - Insomnia [None]
  - Stress [None]
